FAERS Safety Report 5230379-2 (Version None)
Quarter: 2007Q1

REPORT INFORMATION
  Report Type: 
  Country: None (occurrence: None)
  Receive Date: 20070206
  Receipt Date: 20070125
  Transmission Date: 20070707
  Serious: Yes (Death, Life-Threatening, Hospitalization)
  Sender: FDA-Public Use
  Company Number: PFIZER INC-2007008090

PATIENT
  Sex: Female

DRUGS (3)
  1. CAMPTOSAR [Suspect]
     Indication: COLORECTAL CANCER METASTATIC
  2. OXALIPLATIN [Suspect]
     Dosage: TEXT:100 MG M-2
  3. UFT [Suspect]
     Dosage: TEXT:250 MG M-2

REACTIONS (5)
  - DIARRHOEA [None]
  - LETHARGY [None]
  - NAUSEA [None]
  - NEUTROPENIA [None]
  - SUDDEN DEATH [None]
